FAERS Safety Report 19868439 (Version 1)
Quarter: 2021Q3

REPORT INFORMATION
  Report Type: Report from Study
  Country: US (occurrence: US)
  Receive Date: 20210921
  Receipt Date: 20210921
  Transmission Date: 20211014
  Serious: Yes (Other)
  Sender: FDA-Public Use
  Company Number: US-SA-2021SA310038

PATIENT
  Age: 95 Year
  Sex: Female

DRUGS (1)
  1. DUPILUMAB [Suspect]
     Active Substance: DUPILUMAB
     Indication: DERMATITIS ALLERGIC
     Dosage: 300 MG, QOW
     Route: 058
     Dates: start: 20210901

REACTIONS (4)
  - Pruritus [Unknown]
  - Thrombosis [Unknown]
  - Product use in unapproved indication [Unknown]
  - Sleep disorder [Unknown]

NARRATIVE: CASE EVENT DATE: 202109
